FAERS Safety Report 9718562 (Version 4)
Quarter: 2013Q4

REPORT INFORMATION
  Report Type: Report from Study
  Country: RU (occurrence: RU)
  Receive Date: 20131127
  Receipt Date: 20131220
  Transmission Date: 20140711
  Serious: Yes (Other)
  Sender: FDA-Public Use
  Company Number: RU-MERCK-1208RUS000141

PATIENT
  Age: 21 Year
  Sex: Female
  Weight: 77 kg

DRUGS (5)
  1. BOCEPREVIR [Suspect]
     Indication: CHRONIC HEPATITIS C
     Dosage: 800 MG, TID
     Route: 048
     Dates: start: 20120320
  2. PEGINTRON [Suspect]
     Indication: CHRONIC HEPATITIS C
     Dosage: REDIPEN 120 MCG, 0.5 ML, QW
     Route: 058
     Dates: start: 20120221, end: 20120710
  3. PEGINTRON [Suspect]
     Dosage: 0.35 ML,(84MCG)
     Route: 058
     Dates: start: 20120717
  4. REBETOL [Suspect]
     Indication: CHRONIC HEPATITIS C
     Dosage: 1200MG, BID
     Route: 048
     Dates: start: 20120221
  5. REBETOL [Suspect]
     Dosage: 600 MG, UNK
     Route: 048
     Dates: start: 20120521

REACTIONS (1)
  - Neutropenia [Recovered/Resolved]
